FAERS Safety Report 6779385-7 (Version None)
Quarter: 2010Q2

REPORT INFORMATION
  Report Type: 
  Country: None (occurrence: None)
  Receive Date: 20100618
  Receipt Date: 20100611
  Transmission Date: 20101027
  Serious: Yes (Other)
  Sender: FDA-Public Use
  Company Number: PHHY2010FI35992

PATIENT
  Sex: Female

DRUGS (4)
  1. STALEVO 100 [Suspect]
     Dosage: 100/3 TO 100/4, UNK
     Dates: start: 20090801, end: 20100121
  2. SIMVASTATIN [Suspect]
     Dosage: UNK
     Dates: start: 20090801, end: 20091201
  3. SIFROL [Concomitant]
     Dosage: UNK,UNK
  4. THYROXIN [Concomitant]
     Dosage: UNK,UNK

REACTIONS (2)
  - PLATELET COUNT DECREASED [None]
  - UTERINE OPERATION [None]
